FAERS Safety Report 16475923 (Version 2)
Quarter: 2019Q3

REPORT INFORMATION
  Report Type: Spontaneous
  Country: US (occurrence: US)
  Receive Date: 20190625
  Receipt Date: 20190815
  Transmission Date: 20191004
  Serious: Yes (Hospitalization, Other)
  Sender: FDA-Public Use
  Company Number: US-MYLANLABS-2019M1058536

PATIENT
  Age: 53 Year
  Sex: Female

DRUGS (4)
  1. ALBUTEROL SULFATE. [Concomitant]
     Active Substance: ALBUTEROL SULFATE
     Indication: PRODUCT USED FOR UNKNOWN INDICATION
     Dosage: INHALER
     Route: 050
  2. BUDESONIDE W/FORMOTEROL FUMARATE [Interacting]
     Active Substance: BUDESONIDE\FORMOTEROL FUMARATE
     Indication: PRODUCT USED FOR UNKNOWN INDICATION
     Dosage: INHALER
     Route: 050
  3. PANTOPRAZOLE [Suspect]
     Active Substance: PANTOPRAZOLE
     Indication: PRODUCT USED FOR UNKNOWN INDICATION
     Dosage: UNK
     Route: 065
  4. GLECAPREVIR;PIBRENTASVIR [Interacting]
     Active Substance: GLECAPREVIR\PIBRENTASVIR
     Indication: CHRONIC HEPATITIS C
     Dosage: 3 DOSAGE FORM, QD
     Route: 065

REACTIONS (2)
  - Drug interaction [Recovered/Resolved]
  - Drug-induced liver injury [Recovered/Resolved]
